FAERS Safety Report 5195222-9 (Version None)
Quarter: 2006Q4

REPORT INFORMATION
  Report Type: 
  Country: None (occurrence: None)
  Receive Date: 20061229
  Receipt Date: 20061106
  Transmission Date: 20070319
  Serious: Yes (Hospitalization, Disabling, Other)
  Sender: FDA-Public Use
  Company Number: FR-PFIZER INC-2006137900

PATIENT
  Sex: Female

DRUGS (8)
  1. LYRICA [Suspect]
     Indication: ARTHRITIS
     Dates: start: 20061011, end: 20061015
  2. TRAMADOL HYDROCHLORIDE/ACETAMINOPHEN [Suspect]
     Indication: ARTHRITIS
     Dosage: FREQ:FOUR TIMES DAILY
     Route: 048
     Dates: start: 20061011, end: 20061012
  3. FONZYLANE [Concomitant]
     Route: 048
  4. CORDARONE [Concomitant]
  5. DIGOXIN [Concomitant]
  6. LASIX [Concomitant]
  7. ASPIRIN [Concomitant]
  8. ZESTRIL [Concomitant]

REACTIONS (9)
  - CONFUSIONAL STATE [None]
  - DISORIENTATION [None]
  - DYSKINESIA [None]
  - FALL [None]
  - FRACTURE [None]
  - GASTRITIS [None]
  - ILL-DEFINED DISORDER [None]
  - TREMOR [None]
  - VOMITING [None]
